FAERS Safety Report 15537334 (Version 4)
Quarter: 2019Q3

REPORT INFORMATION
  Report Type: Report from Study
  Country: DE (occurrence: DE)
  Receive Date: 20181022
  Receipt Date: 20190812
  Transmission Date: 20191004
  Serious: Yes (Hospitalization, Other)
  Sender: FDA-Public Use
  Company Number: PHHY2018DE074421

PATIENT
  Age: 7 Month
  Sex: Female
  Weight: 2 kg

DRUGS (2)
  1. ILARIS [Suspect]
     Active Substance: CANAKINUMAB
     Dosage: UNK
     Route: 065
  2. ILARIS [Suspect]
     Active Substance: CANAKINUMAB
     Indication: FOETAL EXPOSURE DURING PREGNANCY
     Dosage: MATERNAL DOSE: 150 MG, Q8W
     Route: 064

REACTIONS (5)
  - Motor developmental delay [Recovering/Resolving]
  - Low birth weight baby [Recovering/Resolving]
  - Foetal exposure during pregnancy [Unknown]
  - Premature baby [Unknown]
  - Respiratory syncytial virus bronchitis [Recovered/Resolved]

NARRATIVE: CASE EVENT DATE: 20181231
